FAERS Safety Report 18385717 (Version 1)
Quarter: 2020Q4

REPORT INFORMATION
  Report Type: Spontaneous
  Country: CN (occurrence: CN)
  Receive Date: 20201015
  Receipt Date: 20201015
  Transmission Date: 20210114
  Serious: Yes (Other)
  Sender: FDA-Public Use
  Company Number: CN-ROCHE-2695271

PATIENT
  Age: 27 Year
  Sex: Female
  Weight: 37.6 kg

DRUGS (1)
  1. XELODA [Suspect]
     Active Substance: CAPECITABINE
     Indication: TONGUE NEOPLASM MALIGNANT STAGE UNSPECIFIED
     Route: 048
     Dates: start: 20200909, end: 20200911

REACTIONS (3)
  - Liver injury [Recovering/Resolving]
  - Off label use [Unknown]
  - Intentional product use issue [Unknown]
